FAERS Safety Report 7034540-6 (Version None)
Quarter: 2010Q4

REPORT INFORMATION
  Report Type: 
  Country: None (occurrence: None)
  Receive Date: 20101008
  Receipt Date: 20100929
  Transmission Date: 20110411
  Serious: Yes (Hospitalization, Other)
  Sender: FDA-Public Use
  Company Number: GB-ASTRAZENECA-2010SE46151

PATIENT
  Age: 23 Year
  Sex: Female

DRUGS (5)
  1. SEROQUEL [Suspect]
     Indication: AFFECT LABILITY
     Route: 048
  2. CODENE [Concomitant]
  3. NORDETTE-28 [Concomitant]
  4. TRANODOL [Concomitant]
     Dosage: 50 MG TO 100 MG PRN
  5. ZOPICLONE [Concomitant]

REACTIONS (2)
  - DEEP VEIN THROMBOSIS [None]
  - KNEE OPERATION [None]
